FAERS Safety Report 4485007-0 (Version None)
Quarter: 2004Q4

REPORT INFORMATION
  Report Type: 
  Country: None (occurrence: None)
  Receive Date: 20041026
  Receipt Date: 20041014
  Transmission Date: 20050328
  Serious: Yes (Other)
  Sender: FDA-Public Use
  Company Number: NO-JNJFOC-20040908506

PATIENT
  Age: 14 Year
  Sex: Female

DRUGS (5)
  1. REMICADE [Suspect]
     Dosage: 3RD INFUSION  -  4TH INFUSION EXPECTED TO BE TAKEN 28TH SEPTEMBTER 2004
     Route: 042
  2. REMICADE [Suspect]
     Dosage: 2ND INFUSION
     Route: 042
  3. REMICADE [Suspect]
     Dosage: 1ST INFUSION
     Route: 042
  4. PARACETAMOL [Concomitant]
  5. IBUPROFEN [Concomitant]
     Dosage: 400 MG MORNING  400 MG MID-DAY  600 MG EVENING

REACTIONS (3)
  - ALANINE AMINOTRANSFERASE INCREASED [None]
  - ASPARTATE AMINOTRANSFERASE INCREASED [None]
  - BLOOD ALKALINE PHOSPHATASE INCREASED [None]
